FAERS Safety Report 4953010-X (Version None)
Quarter: 2006Q1

REPORT INFORMATION
  Report Type: 
  Country: None (occurrence: None)
  Receive Date: 20060324
  Receipt Date: 20051013
  Transmission Date: 20060701
  Serious: Yes (Hospitalization)
  Sender: FDA-Public Use
  Company Number: JP-GLAXOSMITHKLINE-B0397183A

PATIENT
  Age: 69 Year
  Sex: Male

DRUGS (10)
  1. HEPSERA [Suspect]
     Indication: HEPATIC CIRRHOSIS
     Dosage: 10MG PER DAY
     Route: 048
     Dates: start: 20031113
  2. ZEFIX [Suspect]
     Dosage: 100MG PER DAY
     Route: 048
     Dates: start: 20011023
  3. WARFARIN SODIUM [Concomitant]
     Dosage: 1MG PER DAY
     Route: 048
  4. ANPLAG [Concomitant]
     Dosage: 300MG PER DAY
     Route: 048
  5. SELBEX [Concomitant]
     Dosage: 150MG PER DAY
     Route: 048
  6. DIART [Concomitant]
     Dosage: 60MG PER DAY
     Route: 048
  7. DIGOSIN [Concomitant]
     Dosage: .125MG PER DAY
     Route: 048
  8. GASTER D [Concomitant]
     Dosage: 20MG PER DAY
     Route: 048
  9. ALDACTONE [Concomitant]
     Dosage: 50MG PER DAY
     Route: 048
  10. SLOW-K [Concomitant]
     Dosage: 1200MG PER DAY
     Route: 048

REACTIONS (3)
  - GASTRIC VARICES [None]
  - HEPATIC NEOPLASM MALIGNANT [None]
  - SPLENOMEGALY [None]
